FAERS Safety Report 8781427 (Version 4)
Quarter: 2013Q1

REPORT INFORMATION
  Report Type: Spontaneous
  Country: US (occurrence: US)
  Receive Date: 20120913
  Receipt Date: 20130228
  Transmission Date: 20140127
  Serious: Yes (Death, Hospitalization)
  Sender: FDA-Public Use
  Company Number: US-ACTELION-A-NJ2012-71109

PATIENT
  Age: 84 Year
  Sex: Female

DRUGS (3)
  1. TRACLEER [Suspect]
     Indication: PULMONARY HYPERTENSION
     Dosage: 125 MG, BID
     Route: 048
     Dates: end: 20120912
  2. VENTAVIS [Suspect]
     Indication: PULMONARY HYPERTENSION
     Dosage: 6X DAILY
     Route: 055
     Dates: start: 20101105, end: 20120912
  3. COUMADIN [Concomitant]

REACTIONS (6)
  - Acute myocardial infarction [Fatal]
  - Cardiac failure congestive [Fatal]
  - Pulmonary oedema [Fatal]
  - Adenocarcinoma of colon [Fatal]
  - Colectomy [Fatal]
  - Drug dose omission [Unknown]
